FAERS Safety Report 7002474-9 (Version None)
Quarter: 2010Q3

REPORT INFORMATION
  Report Type: 
  Country: None (occurrence: None)
  Receive Date: 20100920
  Receipt Date: 20091008
  Transmission Date: 20110219
  Serious: No
  Sender: FDA-Public Use
  Company Number: US-ASTRAZENECA-2009UW11453

PATIENT
  Age: 62 Year
  Sex: Female
  Weight: 81.6 kg

DRUGS (3)
  1. SEROQUEL [Suspect]
     Indication: DEPRESSION
     Route: 048
     Dates: start: 20040101, end: 20070501
  2. THORAZINE [Concomitant]
     Dates: start: 19680101
  3. EFFEXOR [Concomitant]
     Dates: start: 19680101

REACTIONS (4)
  - FALL [None]
  - HEAD INJURY [None]
  - OBESITY [None]
  - TYPE 2 DIABETES MELLITUS [None]
